FAERS Safety Report 11217241 (Version 5)
Quarter: 2015Q3

REPORT INFORMATION
  Report Type: Spontaneous
  Country: DE (occurrence: DE)
  Receive Date: 20150625
  Receipt Date: 20150908
  Transmission Date: 20151125
  Serious: Yes (Life-Threatening, Hospitalization, Disabling, Other)
  Sender: FDA-Public Use
  Company Number: DE-UCBSA-2015020233

PATIENT
  Age: 52 Year
  Sex: Male

DRUGS (6)
  1. FOSTER [Concomitant]
     Active Substance: BECLOMETHASONE\FORMOTEROL
     Indication: PRODUCT USED FOR UNKNOWN INDICATION
     Dosage: 100/6PUFFS, 2X/DAY (BID)
  2. BERODUAL [Concomitant]
     Active Substance: FENOTEROL HYDROBROMIDE\IPRATROPIUM BROMIDE
     Indication: CHRONIC OBSTRUCTIVE PULMONARY DISEASE
     Dosage: 1 PUFF
  3. PANTOPRAZOLE SODIUM. [Concomitant]
     Active Substance: PANTOPRAZOLE SODIUM
     Indication: PRODUCT USED FOR UNKNOWN INDICATION
     Dosage: 40 MG, ONCE DAILY (QD)
  4. BERODUAL [Concomitant]
     Active Substance: FENOTEROL HYDROBROMIDE\IPRATROPIUM BROMIDE
     Indication: ASTHMA
  5. LEVETIRACETAM. [Suspect]
     Active Substance: LEVETIRACETAM
     Indication: EPILEPSY
     Dosage: 750 MG, 2X/DAY (BID)
     Route: 048
     Dates: start: 20150422
  6. THEOPHYLLIN [Suspect]
     Active Substance: THEOPHYLLINE ANHYDROUS
     Indication: CHRONIC OBSTRUCTIVE PULMONARY DISEASE
     Dosage: 300 MG, ONCE DAILY (QD)
     Route: 048

REACTIONS (9)
  - Cardiac arrest [Recovered/Resolved]
  - Myocarditis [Unknown]
  - Cardiac failure [Unknown]
  - Generalised tonic-clonic seizure [Unknown]
  - Circulatory collapse [Recovered/Resolved]
  - Stress cardiomyopathy [Recovered/Resolved]
  - Myocardial infarction [Recovering/Resolving]
  - Pneumonia [Unknown]
  - Prinzmetal angina [Recovering/Resolving]

NARRATIVE: CASE EVENT DATE: 2015
